APPROVED DRUG PRODUCT: LOPERAMIDE HYDROCHLORIDE
Active Ingredient: LOPERAMIDE HYDROCHLORIDE
Strength: 2MG
Dosage Form/Route: TABLET;ORAL
Application: A075232 | Product #001
Applicant: L PERRIGO CO
Approved: Jan 6, 2000 | RLD: No | RS: No | Type: OTC